FAERS Safety Report 13278327 (Version 3)
Quarter: 2017Q1

REPORT INFORMATION
  Report Type: Spontaneous
  Country: GB (occurrence: GB)
  Receive Date: 20170228
  Receipt Date: 20170321
  Transmission Date: 20170428
  Serious: Yes (Other)
  Sender: FDA-Public Use
  Company Number: GB-LEO PHARMA-300010

PATIENT
  Sex: Male

DRUGS (5)
  1. DAIVOBET [Concomitant]
     Active Substance: BETAMETHASONE DIPROPIONATE\CALCIPOTRIENE
     Indication: PSORIASIS
     Route: 061
     Dates: end: 20161224
  2. BECLOMETHASONE DIPROPIONATE [Concomitant]
     Active Substance: BECLOMETHASONE DIPROPIONATE
     Indication: PRODUCT USED FOR UNKNOWN INDICATION
  3. DAIVOBET [Suspect]
     Active Substance: BETAMETHASONE DIPROPIONATE\CALCIPOTRIENE
     Indication: PSORIASIS
     Route: 061
     Dates: start: 20161224, end: 20161226
  4. DERMOL 500 LOTION [Concomitant]
     Indication: PSORIASIS
  5. FUCIBET CREAM [Concomitant]
     Active Substance: BETAMETHASONE\FUSIDIC ACID
     Indication: PSORIASIS
     Route: 061

REACTIONS (4)
  - Epidermal necrosis [Recovered/Resolved with Sequelae]
  - Dermatitis allergic [Unknown]
  - Dermatitis contact [Recovered/Resolved]
  - Product use issue [Recovered/Resolved]
